FAERS Safety Report 8996559 (Version 1)
Quarter: 2013Q1

REPORT INFORMATION
  Report Type: Spontaneous
  Country: US (occurrence: US)
  Receive Date: 20130104
  Receipt Date: 20130104
  Transmission Date: 20140127
  Serious: Yes (Hospitalization)
  Sender: FDA-Public Use
  Company Number: US-BAYER-2013-000504

PATIENT
  Age: 46 Year
  Sex: Female

DRUGS (2)
  1. YASMIN [Suspect]
  2. DIOVAN HCT [Concomitant]
     Dosage: 80/12.5MG
     Route: 048
     Dates: start: 20070119, end: 20081209

REACTIONS (1)
  - Pulmonary embolism [Recovered/Resolved]
